FAERS Safety Report 7248519-2 (Version None)
Quarter: 2011Q1

REPORT INFORMATION
  Report Type: 
  Country: None (occurrence: None)
  Receive Date: 20110127
  Receipt Date: 20101227
  Transmission Date: 20110831
  Serious: Yes (Hospitalization)
  Sender: FDA-Public Use
  Company Number: JP-MERCK-1012USA03892

PATIENT
  Age: 60 Year
  Sex: Male

DRUGS (4)
  1. CPT-11 [Concomitant]
     Route: 065
  2. DECADRON [Suspect]
     Indication: NAUSEA
     Route: 048
     Dates: start: 20090701
  3. DECADRON [Suspect]
     Route: 048
     Dates: start: 20090701
  4. S-1 [Concomitant]
     Route: 065

REACTIONS (1)
  - PNEUMOCYSTIS JIROVECI PNEUMONIA [None]
